FAERS Safety Report 9876003 (Version 1)
Quarter: 2014Q1

REPORT INFORMATION
  Report Type: Spontaneous
  Country: US (occurrence: None)
  Receive Date: 20140205
  Receipt Date: 20140205
  Transmission Date: 20141002
  Serious: Yes (Other)
  Sender: FDA-Public Use
  Company Number: None

PATIENT
  Age: 61 Year
  Sex: Male
  Weight: 77.11 kg

DRUGS (2)
  1. ARESTIN [Suspect]
     Indication: PERIODONTAL DISEASE
     Dosage: 4 CARTRIDGES  ONE TIME ADMINISTR  SUBGINGIVAL
     Dates: start: 20131212, end: 20131219
  2. LOVASTATIN [Concomitant]

REACTIONS (1)
  - Vertigo [None]
